FAERS Safety Report 7779826-2 (Version None)
Quarter: 2011Q3

REPORT INFORMATION
  Report Type: 
  Country: None (occurrence: None)
  Receive Date: 20110927
  Receipt Date: 20110920
  Transmission Date: 20111222
  Serious: Yes (Other)
  Sender: FDA-Public Use
  Company Number: US-PFIZER INC-2011057922

PATIENT
  Sex: Male

DRUGS (9)
  1. LIPITOR [Suspect]
     Dosage: UNK
  2. LISINOPRIL [Suspect]
     Dosage: UNK
     Route: 048
  3. AVODART [Suspect]
     Indication: BENIGN PROSTATIC HYPERPLASIA
     Dosage: 1 CAPSULE WEEKLY
     Route: 048
  4. COREG [Suspect]
     Dosage: UNK
  5. FLOMAX [Suspect]
     Dosage: UNK
  6. HYDROCHLOROTHIAZIDE [Suspect]
     Dosage: 12.5MG, UNK
     Route: 048
  7. ASPIRIN [Suspect]
     Dosage: UNK
  8. TYLENOL-500 [Suspect]
     Dosage: UNK
  9. PRILOSEC [Suspect]
     Dosage: UNK
     Route: 048

REACTIONS (3)
  - SYNCOPE [None]
  - DIZZINESS [None]
  - INAPPROPRIATE SCHEDULE OF DRUG ADMINISTRATION [None]
